FAERS Safety Report 5599216-0 (Version None)
Quarter: 2008Q1

REPORT INFORMATION
  Report Type: 
  Country: None (occurrence: None)
  Receive Date: 20080122
  Receipt Date: 20071121
  Transmission Date: 20080703
  Serious: Yes (Hospitalization)
  Sender: FDA-Public Use
  Company Number: DE-GENENTECH-254621

PATIENT
  Sex: Male

DRUGS (8)
  1. RITUXIMAB [Suspect]
     Indication: B-CELL LYMPHOMA
     Dosage: 750 MG, UNK
     Route: 042
     Dates: start: 20070807
  2. CISPLATIN [Suspect]
     Indication: B-CELL LYMPHOMA
     Dosage: 200 MG, UNK
     Route: 042
     Dates: start: 20070808
  3. CYTARABINE [Suspect]
     Indication: B-CELL LYMPHOMA
     Dosage: 4000 MG, UNK
     Route: 042
     Dates: start: 20070809
  4. DEXAMETHASONE TAB [Suspect]
     Indication: B-CELL LYMPHOMA
     Dosage: 40 MG, UNK
     Route: 048
     Dates: start: 20070807
  5. GCSF OR GMCSF [Suspect]
     Indication: B-CELL LYMPHOMA
     Dosage: 263 A?G, UNK
     Route: 058
     Dates: start: 20070902
  6. COLISTIN SULFATE [Concomitant]
     Indication: DRUG USE FOR UNKNOWN INDICATION
     Dates: start: 20070828, end: 20071002
  7. RAMIPRIL [Concomitant]
     Indication: DRUG USE FOR UNKNOWN INDICATION
     Dates: end: 20071002
  8. NITRENDIPIN [Concomitant]
     Indication: DRUG USE FOR UNKNOWN INDICATION
     Dates: start: 20070829, end: 20070924

REACTIONS (4)
  - DEHYDRATION [None]
  - NAUSEA [None]
  - RENAL FAILURE [None]
  - VOMITING [None]
